FAERS Safety Report 11944603 (Version 1)
Quarter: 2016Q1

REPORT INFORMATION
  Report Type: Spontaneous
  Country: US (occurrence: US)
  Receive Date: 20160125
  Receipt Date: 20160125
  Transmission Date: 20160526
  Serious: No
  Sender: FDA-Public Use
  Company Number: US-UNICHEM LABORATORIES LIMITED-UCM201507-000477

PATIENT
  Sex: Female

DRUGS (3)
  1. RHINOCORT [Concomitant]
     Active Substance: BUDESONIDE
     Route: 045
  2. MELOXICAM. [Suspect]
     Active Substance: MELOXICAM
     Indication: ARTHRALGIA
     Route: 048
     Dates: start: 20150608
  3. LISINOPRIL. [Concomitant]
     Active Substance: LISINOPRIL
     Indication: BLOOD PRESSURE ABNORMAL

REACTIONS (4)
  - Hernia [Unknown]
  - Condition aggravated [Unknown]
  - Diverticulitis [Unknown]
  - Hernia pain [Recovered/Resolved]
